FAERS Safety Report 5080354-6 (Version None)
Quarter: 2006Q3

REPORT INFORMATION
  Report Type: 
  Country: None (occurrence: None)
  Receive Date: 20060814
  Receipt Date: 20060814
  Transmission Date: 20061208
  Serious: Yes (Hospitalization)
  Sender: FDA-Public Use
  Company Number: None

PATIENT
  Age: 64 Year
  Sex: Male
  Weight: 96.6162 kg

DRUGS (1)
  1. VISIPAQUE [Suspect]
     Indication: ARTERIOGRAM CORONARY
     Dates: start: 20060608, end: 20060608

REACTIONS (5)
  - BLOOD PRESSURE DECREASED [None]
  - CONTRAST MEDIA REACTION [None]
  - DIZZINESS [None]
  - HEART RATE DECREASED [None]
  - PROCEDURAL COMPLICATION [None]
